FAERS Safety Report 7576145-4 (Version None)
Quarter: 2011Q2

REPORT INFORMATION
  Report Type: 
  Country: None (occurrence: None)
  Receive Date: 20110623
  Receipt Date: 20110623
  Transmission Date: 20111010
  Serious: Yes (Other)
  Sender: FDA-Public Use
  Company Number: None

PATIENT
  Age: 24 Year
  Sex: Female

DRUGS (1)
  1. SERTRALINE HYDROCHLORIDE [Suspect]
     Indication: ANXIETY
     Dosage: 50MG DAILY PO
     Route: 048

REACTIONS (5)
  - PANIC ATTACK [None]
  - HYPERHIDROSIS [None]
  - PALPITATIONS [None]
  - DYSPHONIA [None]
  - DYSPNOEA [None]
